FAERS Safety Report 12173670 (Version 1)
Quarter: 2016Q1

REPORT INFORMATION
  Report Type: Spontaneous
  Country: US (occurrence: None)
  Receive Date: 20160311
  Receipt Date: 20160311
  Transmission Date: 20160526
  Serious: No
  Sender: FDA-Public Use
  Company Number: None

PATIENT
  Age: 63 Year
  Sex: Male
  Weight: 73.94 kg

DRUGS (1)
  1. SUCRALFATE. [Suspect]
     Active Substance: SUCRALFATE
     Indication: GASTRIC ULCER
     Dosage: 1 PILL THREE TIMES DAILY TAKEN BY MOUTH UNTIL FINISHED
     Route: 048

REACTIONS (9)
  - Nausea [None]
  - Headache [None]
  - Ageusia [None]
  - Gastrooesophageal reflux disease [None]
  - Fatigue [None]
  - Abdominal distension [None]
  - Hypoaesthesia oral [None]
  - Arthralgia [None]
  - Pain in extremity [None]

NARRATIVE: CASE EVENT DATE: 20160306
